FAERS Safety Report 20622792 (Version 2)
Quarter: 2022Q2

REPORT INFORMATION
  Report Type: Spontaneous
  Country: US (occurrence: US)
  Receive Date: 20220322
  Receipt Date: 20220517
  Transmission Date: 20220720
  Serious: No
  Sender: FDA-Public Use
  Company Number: US-MMM-SUALZ9EP

PATIENT
  Age: 35 Year
  Sex: Male
  Weight: 92 kg

DRUGS (3)
  1. CABENUVA [Suspect]
     Active Substance: CABOTEGRAVIR\RILPIVIRINE
     Indication: HIV infection
     Dosage: 6 ML 600MG/3ML +900MG/3ML 6MLX2 CONSECUTIVE MONTHS, THEN EVERY OTHER MONTH
     Route: 030
     Dates: start: 20220309
  2. CABENUVA [Suspect]
     Active Substance: CABOTEGRAVIR\RILPIVIRINE
  3. CABENUVA [Suspect]
     Active Substance: CABOTEGRAVIR\RILPIVIRINE

REACTIONS (1)
  - Intercepted product dispensing error [Recovered/Resolved]

NARRATIVE: CASE EVENT DATE: 20220309
